FAERS Safety Report 19389104 (Version 1)
Quarter: 2021Q2

REPORT INFORMATION
  Report Type: Spontaneous
  Country: US (occurrence: US)
  Receive Date: 20210607
  Receipt Date: 20210607
  Transmission Date: 20210717
  Serious: Yes (Hospitalization)
  Sender: FDA-Public Use
  Company Number: None

PATIENT
  Age: 35 Year
  Sex: Female

DRUGS (5)
  1. PANTOPRAZOLE [Concomitant]
     Active Substance: PANTOPRAZOLE
  2. HUMIRA [Suspect]
     Active Substance: ADALIMUMAB
     Indication: CROHN^S DISEASE
     Dosage: ?          OTHER FREQUENCY:EVERY 2 WEEKS;?
     Route: 058
     Dates: start: 20200603
  3. PREDNISONE. [Concomitant]
     Active Substance: PREDNISONE
  4. METRONIDAZOLE. [Concomitant]
     Active Substance: METRONIDAZOLE
  5. ANTIBIOTICS [Concomitant]
     Active Substance: UNSPECIFIED INGREDIENT

REACTIONS (1)
  - Crohn^s disease [None]

NARRATIVE: CASE EVENT DATE: 20210517
